FAERS Safety Report 7576784-0 (Version None)
Quarter: 2011Q2

REPORT INFORMATION
  Report Type: 
  Country: None (occurrence: None)
  Receive Date: 20110628
  Receipt Date: 20110614
  Transmission Date: 20111010
  Serious: Yes (Other)
  Sender: FDA-Public Use
  Company Number: JP-JNJFOC-20100800134

PATIENT
  Sex: Male
  Weight: 102 kg

DRUGS (11)
  1. REMICADE [Suspect]
     Route: 042
     Dates: start: 20100622
  2. OLOPATADINE HCL [Concomitant]
     Indication: PROPHYLAXIS
     Route: 048
     Dates: start: 20100718, end: 20100723
  3. CYCLOSPORINE [Concomitant]
     Indication: PSORIATIC ARTHROPATHY
     Route: 048
     Dates: start: 20100915
  4. REMICADE [Suspect]
     Route: 042
     Dates: start: 20070905
  5. REMICADE [Suspect]
     Route: 042
     Dates: start: 20100608
  6. SAXIZON [Concomitant]
     Indication: PROPHYLAXIS
  7. NEORAL [Concomitant]
     Indication: PSORIATIC ARTHROPATHY
     Route: 048
     Dates: start: 20100721, end: 20100914
  8. ISONIAZID [Concomitant]
     Indication: ANTIBIOTIC PROPHYLAXIS
     Dates: start: 20100312, end: 20100804
  9. CELECOXIB [Concomitant]
     Indication: PSORIATIC ARTHROPATHY
     Route: 048
  10. REMICADE [Suspect]
     Indication: PSORIATIC ARTHROPATHY
     Route: 042
     Dates: start: 20100721
  11. TALION [Concomitant]
     Indication: PROPHYLAXIS
     Route: 048
     Dates: start: 20100623

REACTIONS (7)
  - RALES [None]
  - OXYGEN SATURATION DECREASED [None]
  - INFUSION RELATED REACTION [None]
  - HYPERTENSION [None]
  - CHEST DISCOMFORT [None]
  - DYSPNOEA [None]
  - HOT FLUSH [None]
